FAERS Safety Report 9688416 (Version 1)
Quarter: 2013Q4

REPORT INFORMATION
  Report Type: Spontaneous
  Country: TR (occurrence: TR)
  Receive Date: 20131114
  Receipt Date: 20131114
  Transmission Date: 20140711
  Serious: Yes (Other)
  Sender: FDA-Public Use
  Company Number: TR-ASTRAZENECA-2013SE81203

PATIENT
  Age: 38 Year
  Sex: Female

DRUGS (1)
  1. PROPOFOL [Suspect]
     Route: 042
     Dates: start: 201208

REACTIONS (2)
  - Drug dependence [Recovered/Resolved]
  - Drug abuse [Unknown]
